FAERS Safety Report 9303094 (Version 2)
Quarter: 2013Q3

REPORT INFORMATION
  Report Type: Spontaneous
  Country: JP (occurrence: JP)
  Receive Date: 20130522
  Receipt Date: 20130726
  Transmission Date: 20140515
  Serious: Yes (Other)
  Sender: FDA-Public Use
  Company Number: JP-B.I. PHARMACEUTICALS,INC./RIDGEFIELD-2013-BI-13891YA

PATIENT
  Sex: Male

DRUGS (3)
  1. HARNAL [Suspect]
     Dosage: FORMULATION:ORODISPERSIBLE CR TABLET
     Route: 048
  2. NU-LOTAN [Suspect]
     Route: 048
  3. LAMISIL [Concomitant]

REACTIONS (1)
  - Platelet count decreased [Not Recovered/Not Resolved]
